FAERS Safety Report 5817966-5 (Version None)
Quarter: 2008Q3

REPORT INFORMATION
  Report Type: 
  Country: None (occurrence: None)
  Receive Date: 20080722
  Receipt Date: 20080702
  Transmission Date: 20090109
  Serious: No
  Sender: FDA-Public Use
  Company Number: US-BOEHRINGER INGELHEIM GMBH, GERMANY-2007-BP-23589BP

PATIENT
  Sex: Female

DRUGS (4)
  1. SPIRIVA [Suspect]
     Indication: CHRONIC OBSTRUCTIVE PULMONARY DISEASE
     Route: 055
     Dates: start: 20061001
  2. ATIVAN [Concomitant]
  3. LIPITOR [Concomitant]
  4. ALBUTEROL [Concomitant]

REACTIONS (2)
  - EYE PAIN [None]
  - VISION BLURRED [None]
